FAERS Safety Report 19651249 (Version 1)
Quarter: 2021Q3

REPORT INFORMATION
  Report Type: Spontaneous
  Country: US (occurrence: US)
  Receive Date: 20210803
  Receipt Date: 20210803
  Transmission Date: 20211014
  Serious: No
  Sender: FDA-Public Use
  Company Number: US-FERRINGPH-2020FE04925

PATIENT
  Age: 37 Year
  Sex: Female
  Weight: 54 kg

DRUGS (1)
  1. ENDOMETRIN [Suspect]
     Active Substance: PROGESTERONE
     Indication: ASSISTED FERTILISATION
     Dosage: UNK
     Route: 067
     Dates: start: 20200718, end: 20200723

REACTIONS (4)
  - Vulvovaginal swelling [Not Recovered/Not Resolved]
  - Vulvovaginal inflammation [Not Recovered/Not Resolved]
  - Vulvovaginal discomfort [Not Recovered/Not Resolved]
  - Abdominal pain [Not Recovered/Not Resolved]

NARRATIVE: CASE EVENT DATE: 202007
